FAERS Safety Report 21512404 (Version 1)
Quarter: 2022Q4

REPORT INFORMATION
  Report Type: Spontaneous
  Country: US (occurrence: US)
  Receive Date: 20221027
  Receipt Date: 20221027
  Transmission Date: 20230113
  Serious: No
  Sender: FDA-Public Use
  Company Number: US-MAYNE PHARMA-2022MYN001300

PATIENT
  Sex: Female

DRUGS (2)
  1. NEXTSTELLIS [Suspect]
     Active Substance: DROSPIRENONE\ESTETROL MONOHYDRATE
     Indication: Product used for unknown indication
     Dosage: UNK MG
     Route: 048
  2. NEXTSTELLIS [Suspect]
     Active Substance: DROSPIRENONE\ESTETROL MONOHYDRATE
     Dosage: 14.2 MG
     Route: 048

REACTIONS (1)
  - Hyperhidrosis [Unknown]
